FAERS Safety Report 12353928 (Version 1)
Quarter: 2016Q2

REPORT INFORMATION
  Report Type: Spontaneous
  Country: US (occurrence: US)
  Receive Date: 20160511
  Receipt Date: 20160511
  Transmission Date: 20160815
  Serious: Yes (Death, Hospitalization, Other)
  Sender: FDA-Public Use
  Company Number: US-RANBAXY-2013US-65771

PATIENT
  Age: 27 Year
  Sex: Male

DRUGS (3)
  1. ZIDOVUDINE. [Interacting]
     Active Substance: ZIDOVUDINE
     Indication: ACQUIRED IMMUNODEFICIENCY SYNDROME
     Dosage: 200 MG, Q4H
     Route: 048
     Dates: start: 19871025, end: 19871106
  2. ACETAMINOPHEN. [Suspect]
     Active Substance: ACETAMINOPHEN
     Indication: PYREXIA
     Dosage: UNK
     Route: 048
     Dates: start: 198711, end: 198711
  3. BLEOMYCIN [Concomitant]
     Active Substance: BLEOMYCIN SULFATE
     Indication: FACE OEDEMA
     Dosage: UNK
     Route: 065
     Dates: start: 19870910, end: 19871026

REACTIONS (5)
  - Agranulocytosis [Recovered/Resolved]
  - Mycobacterium avium complex infection [Unknown]
  - Drug interaction [Recovered/Resolved]
  - Respiratory failure [Fatal]
  - Thrombocytopenia [Recovered/Resolved]
